FAERS Safety Report 23266388 (Version 5)
Quarter: 2025Q2

REPORT INFORMATION
  Report Type: Report from Study
  Country: CA (occurrence: CA)
  Receive Date: 20231206
  Receipt Date: 20250502
  Transmission Date: 20250716
  Serious: Yes (Other)
  Sender: TAKEDA
  Company Number: CA-TAKEDA-2023TUS115130

PATIENT
  Age: 67 Year
  Sex: Female

DRUGS (4)
  1. VEDOLIZUMAB [Suspect]
     Active Substance: VEDOLIZUMAB
     Indication: Crohn^s disease
  2. VEDOLIZUMAB [Suspect]
     Active Substance: VEDOLIZUMAB
     Dosage: 300 MILLIGRAM, Q4WEEKS
     Dates: start: 20240528
  3. VEDOLIZUMAB [Suspect]
     Active Substance: VEDOLIZUMAB
     Dosage: 300 MILLIGRAM, Q4WEEKS
     Dates: end: 20240303
  4. COUMADIN [Concomitant]
     Active Substance: WARFARIN SODIUM
     Indication: Immunosuppression

REACTIONS (8)
  - Haematochezia [Not Recovered/Not Resolved]
  - Anastomotic ulcer [Unknown]
  - Iron deficiency anaemia [Unknown]
  - Frequent bowel movements [Not Recovered/Not Resolved]
  - Off label use [Unknown]
  - Serum ferritin decreased [Unknown]
  - Drug effect less than expected [Unknown]
  - Discomfort [Unknown]

NARRATIVE: CASE EVENT DATE: 20240528
